FAERS Safety Report 8478593-7 (Version None)
Quarter: 2012Q2

REPORT INFORMATION
  Report Type: 
  Country: None (occurrence: None)
  Receive Date: 20120629
  Receipt Date: 20120621
  Transmission Date: 20120825
  Serious: Yes (Other)
  Sender: FDA-Public Use
  Company Number: FR-AMGEN-FRASP2012021905

PATIENT
  Age: 77 Year
  Sex: Male
  Weight: 81 kg

DRUGS (9)
  1. ARANESP [Suspect]
     Indication: ANAEMIA
     Dosage: 60 MUG, Q2WK
  2. ATORVASTATIN [Concomitant]
     Dosage: 10 MUG, QD
     Route: 048
  3. ARANESP [Suspect]
     Dosage: 500 MUG, UNK
  4. ANTIHYPERTENSIVES [Concomitant]
     Indication: HYPERTENSION
  5. IPERTEN [Concomitant]
     Dosage: 10 MUG, QD
     Route: 048
  6. FUROSEMIDE [Concomitant]
     Dosage: 40 MUG, UNK
     Route: 048
  7. FOSINOPRIL SODIUM [Concomitant]
     Dosage: 20 MUG, QD
     Route: 048
  8. IKOREL [Concomitant]
     Dosage: 10 MUG, 3 DAYS
     Route: 048
  9. PREVISCAN                          /00261401/ [Concomitant]
     Dosage: UNK
     Route: 048

REACTIONS (9)
  - BLOOD PRESSURE DECREASED [None]
  - BLOOD CREATININE INCREASED [None]
  - BRADYARRHYTHMIA [None]
  - DECREASED APPETITE [None]
  - HAEMOGLOBIN DECREASED [None]
  - NAUSEA [None]
  - WEIGHT DECREASED [None]
  - FATIGUE [None]
  - INCORRECT DOSE ADMINISTERED [None]
